FAERS Safety Report 10648540 (Version 1)
Quarter: 2014Q4

REPORT INFORMATION
  Report Type: Spontaneous
  Country: US (occurrence: None)
  Receive Date: 20141210
  Receipt Date: 20141210
  Transmission Date: 20150529
  Serious: Yes (Other)
  Sender: FDA-Public Use
  Company Number: 2014MB000005

PATIENT
  Age: 43 Year
  Sex: Female

DRUGS (1)
  1. MITOSOL [Suspect]
     Active Substance: ISOPROPYL ALCOHOL\MITOMYCIN
     Indication: CONJUNCTIVAL HYPERAEMIA
     Dosage: UNKNOWN

REACTIONS (5)
  - Scleral thinning [None]
  - Conjunctival erosion [None]
  - Conjunctival disorder [None]
  - Eye ulcer [None]
  - Postoperative heterotopic calcification [None]
